FAERS Safety Report 4576729-1 (Version None)
Quarter: 2005Q1

REPORT INFORMATION
  Report Type: 
  Country: None (occurrence: None)
  Receive Date: 20050207
  Receipt Date: 20041115
  Transmission Date: 20050727
  Serious: Yes (Other)
  Sender: FDA-Public Use
  Company Number: 2004097090

PATIENT
  Age: 56 Year
  Sex: Female
  Weight: 52.1637 kg

DRUGS (3)
  1. CELEBREX [Suspect]
     Indication: BACK INJURY
     Dosage: (100 MG, 1 D), ORAL
     Route: 048
  2. BEXTRA [Suspect]
     Indication: ILL-DEFINED DISORDER
  3. PREDNISONE TAB [Suspect]
     Indication: ILL-DEFINED DISORDER

REACTIONS (5)
  - ARTHRALGIA [None]
  - AUTOIMMUNE DISORDER [None]
  - COELIAC DISEASE [None]
  - DIARRHOEA [None]
  - MUSCULOSKELETAL DISCOMFORT [None]
